FAERS Safety Report 15884691 (Version 2)
Quarter: 2019Q1

REPORT INFORMATION
  Report Type: Spontaneous
  Country: AU (occurrence: AU)
  Receive Date: 20190129
  Receipt Date: 20190311
  Transmission Date: 20190417
  Serious: Yes (Disabling)
  Sender: FDA-Public Use
  Company Number: AU-AMREGENT-20190078

PATIENT
  Age: 22 Year
  Sex: Female

DRUGS (1)
  1. FERINJECT [Suspect]
     Active Substance: FERRIC CARBOXYMALTOSE
     Dosage: 1 GM
     Route: 041
     Dates: start: 20180702, end: 20180702

REACTIONS (2)
  - Infusion site discolouration [Recovered/Resolved with Sequelae]
  - Infusion site extravasation [Recovered/Resolved with Sequelae]

NARRATIVE: CASE EVENT DATE: 20180702
